FAERS Safety Report 24730027 (Version 2)
Quarter: 2025Q3

REPORT INFORMATION
  Report Type: Spontaneous
  Country: EU (occurrence: EU)
  Receive Date: 20241213
  Receipt Date: 20250701
  Transmission Date: 20251021
  Serious: No
  Sender: ABBVIE
  Company Number: EU-ABBVIE-6035814

PATIENT

DRUGS (1)
  1. ALPHAGAN P [Suspect]
     Active Substance: BRIMONIDINE TARTRATE
     Indication: Product used for unknown indication
     Route: 047

REACTIONS (1)
  - No adverse event [Unknown]
